FAERS Safety Report 4632227-8 (Version None)
Quarter: 2005Q2

REPORT INFORMATION
  Report Type: 
  Country: None (occurrence: None)
  Receive Date: 20050411
  Receipt Date: 20030703
  Transmission Date: 20051028
  Serious: Yes (Hospitalization)
  Sender: FDA-Public Use
  Company Number: JP-ROCHE-341731

PATIENT
  Age: 33 Year
  Sex: Male

DRUGS (4)
  1. SAQUINAVIR [Suspect]
     Indication: HIV INFECTION
     Route: 048
     Dates: start: 20020812
  2. ZERIT [Suspect]
     Indication: HIV INFECTION
     Route: 065
     Dates: start: 20020812
  3. ZIAGEN [Suspect]
     Indication: HIV INFECTION
     Route: 065
     Dates: start: 20020812
  4. NORVIR [Suspect]
     Indication: HIV INFECTION
     Route: 065
     Dates: start: 20020812

REACTIONS (3)
  - ARTHRALGIA [None]
  - HEADACHE [None]
  - PNEUMONIA [None]
